FAERS Safety Report 15754816 (Version 3)
Quarter: 2019Q1

REPORT INFORMATION
  Report Type: Spontaneous
  Country: JP (occurrence: JP)
  Receive Date: 20181224
  Receipt Date: 20190306
  Transmission Date: 20190417
  Serious: Yes (Hospitalization)
  Sender: FDA-Public Use
  Company Number: JP-009507513-1812JPN001787J

PATIENT
  Age: 78 Year
  Sex: Female
  Weight: 42 kg

DRUGS (9)
  1. LANSOPRAZOLE. [Concomitant]
     Active Substance: LANSOPRAZOLE
     Indication: GASTROOESOPHAGEAL REFLUX DISEASE
     Dosage: 15 MILLIGRAM, QD
     Route: 048
  2. NU-LOTAN [Concomitant]
     Active Substance: LOSARTAN POTASSIUM
     Indication: HYPERTENSION
     Dosage: 25 MILLIGRAM, QD
     Route: 048
  3. ISOSORBIDE. [Concomitant]
     Active Substance: ISOSORBIDE
     Indication: HYPERTENSION
     Dosage: 20 MILLIGRAM, BID
     Route: 048
  4. AZOSEMIDE [Concomitant]
     Active Substance: AZOSEMIDE
     Indication: HYPERTENSION
     Dosage: 30 MILLIGRAM, QD
     Route: 048
  5. BAYASPIRIN [Concomitant]
     Active Substance: ASPIRIN
     Indication: ANGINA PECTORIS
     Dosage: 100 MILLIGRAM, QD
     Route: 048
  6. KEYTRUDA [Suspect]
     Active Substance: PEMBROLIZUMAB
     Indication: NON-SMALL CELL LUNG CANCER
     Dosage: 200 MILLIGRAM, Q3W
     Route: 041
     Dates: start: 20180809, end: 20180925
  7. LOPERAMIDE [Concomitant]
     Active Substance: LOPERAMIDE
     Indication: ENTEROCOLITIS
     Dosage: 2 MILLIGRAM, QD
     Route: 048
  8. AMLODIPINE [Concomitant]
     Active Substance: AMLODIPINE BESYLATE
     Indication: HYPERTENSION
     Dosage: 2.5 MILLIGRAM, QD
     Route: 048
  9. ROSUVASTATIN. [Concomitant]
     Active Substance: ROSUVASTATIN
     Indication: DYSLIPIDAEMIA
     Dosage: 2.5 MILLIGRAM, QD
     Route: 048

REACTIONS (4)
  - Hypothyroidism [Recovering/Resolving]
  - Oedema peripheral [Recovering/Resolving]
  - Diarrhoea [Recovering/Resolving]
  - Dermatitis psoriasiform [Recovering/Resolving]

NARRATIVE: CASE EVENT DATE: 20180827
